FAERS Safety Report 4634954-5 (Version None)
Quarter: 2005Q2

REPORT INFORMATION
  Report Type: 
  Country: None (occurrence: None)
  Receive Date: 20050411
  Receipt Date: 20050329
  Transmission Date: 20051028
  Serious: Yes (Other)
  Sender: FDA-Public Use
  Company Number: 2005051911

PATIENT
  Age: 52 Year
  Sex: Male

DRUGS (3)
  1. NEURONTIN [Suspect]
     Indication: ILL-DEFINED DISORDER
     Dosage: 200-300MG UP TO THREE TIMES DAILY, ORAL
     Route: 048
     Dates: end: 20050306
  2. CLONIDINE [Concomitant]
  3. TEMAZEPAM [Concomitant]

REACTIONS (6)
  - BLISTER [None]
  - COMA [None]
  - DROOLING [None]
  - LIP DISORDER [None]
  - OVERDOSE [None]
  - SPEECH DISORDER [None]
